FAERS Safety Report 8947720 (Version 2)
Quarter: 2013Q2

REPORT INFORMATION
  Report Type: Spontaneous
  Country: US (occurrence: US)
  Receive Date: 20121204
  Receipt Date: 20130430
  Transmission Date: 20140414
  Serious: No
  Sender: FDA-Public Use
  Company Number: US-009507513-1212USA000481

PATIENT
  Age: 55 Year
  Sex: Female
  Weight: 55.78 kg

DRUGS (3)
  1. PEGINTRON [Suspect]
     Indication: HEPATITIS C
     Dosage: 80 MCG QW
     Route: 058
     Dates: start: 20120316, end: 20120921
  2. REBETOL [Suspect]
     Indication: HEPATITIS C
     Dosage: 400 MG, BID
     Route: 048
     Dates: start: 20120316, end: 20120926
  3. VICTRELIS [Suspect]
     Indication: HEPATITIS C
     Dosage: 800 MG, TID
     Route: 048
     Dates: start: 20120413, end: 20120926

REACTIONS (10)
  - Arthropathy [Unknown]
  - Anaemia macrocytic [Recovered/Resolved]
  - Neutropenia [Unknown]
  - Mood altered [Not Recovered/Not Resolved]
  - Leukopenia [Unknown]
  - Helicobacter gastritis [Unknown]
  - Retinal detachment [Unknown]
  - Peripheral sensory neuropathy [Unknown]
  - Retinopexy [Unknown]
  - Seasonal allergy [Unknown]
